FAERS Safety Report 8181687-7 (Version None)
Quarter: 2012Q1

REPORT INFORMATION
  Report Type: 
  Country: None (occurrence: None)
  Receive Date: 20120302
  Receipt Date: 20110808
  Transmission Date: 20120608
  Serious: Yes (Other)
  Sender: FDA-Public Use
  Company Number: US-AMGEN-USASP2011040324

PATIENT
  Age: 63 Year
  Sex: Female

DRUGS (2)
  1. IVIGLOB-EX [Concomitant]
  2. NPLATE [Suspect]
     Indication: IDIOPATHIC THROMBOCYTOPENIC PURPURA
     Dosage: 730 MUG, UNK
     Dates: start: 20110228, end: 20110503

REACTIONS (1)
  - DRUG INEFFECTIVE [None]
